FAERS Safety Report 12775768 (Version 2)
Quarter: 2018Q4

REPORT INFORMATION
  Report Type: Spontaneous
  Country: US (occurrence: US)
  Receive Date: 20160923
  Receipt Date: 20181213
  Transmission Date: 20190204
  Serious: Yes (Other)
  Sender: FDA-Public Use
  Company Number: US-PFIZER INC-2016443601

PATIENT
  Age: 70 Year
  Sex: Female

DRUGS (2)
  1. IBUPROFEN. [Suspect]
     Active Substance: IBUPROFEN
     Dosage: UNK
  2. ASPIRIN. [Suspect]
     Active Substance: ASPIRIN
     Dosage: 81 MG, 2X/DAY

REACTIONS (6)
  - Gastrointestinal haemorrhage [Unknown]
  - Epigastric discomfort [Unknown]
  - Irritable bowel syndrome [Unknown]
  - Colitis [Unknown]
  - Abdominal discomfort [Unknown]
  - Drug hypersensitivity [Unknown]
